FAERS Safety Report 17984035 (Version 1)
Quarter: 2020Q3

REPORT INFORMATION
  Report Type: Spontaneous
  Country: ES (occurrence: ES)
  Receive Date: 20200706
  Receipt Date: 20200706
  Transmission Date: 20201103
  Serious: Yes (Other)
  Sender: FDA-Public Use
  Company Number: ES-PFIZER INC-2020255578

PATIENT
  Age: 73 Year
  Sex: Female

DRUGS (3)
  1. DOXORUBICIN HCL [Suspect]
     Active Substance: DOXORUBICIN HYDROCHLORIDE
     Indication: ADJUVANT THERAPY
     Dosage: UNK UNK, CYCLIC (6 CYCLES)
     Dates: end: 200309
  2. CYTOXAN [Concomitant]
     Active Substance: CYCLOPHOSPHAMIDE
     Indication: ADJUVANT THERAPY
     Dosage: UNK UNK, CYCLIC (6 CYCLES)
     Dates: end: 200309
  3. FLUOROURACIL. [Concomitant]
     Active Substance: FLUOROURACIL
     Indication: ADJUVANT THERAPY
     Dosage: UNK UNK, CYCLIC (6 CYCLES)
     Dates: end: 200309

REACTIONS (1)
  - Hepatotoxicity [Unknown]
